FAERS Safety Report 6426160-9 (Version None)
Quarter: 2009Q4

REPORT INFORMATION
  Report Type: 
  Country: None (occurrence: None)
  Receive Date: 20091104
  Receipt Date: 20091022
  Transmission Date: 20100525
  Serious: Yes (Other)
  Sender: FDA-Public Use
  Company Number: US-ELI_LILLY_AND_COMPANY-US200903007490

PATIENT
  Sex: Female
  Weight: 63.946 kg

DRUGS (12)
  1. FORTEO [Suspect]
     Indication: OSTEOPOROSIS
     Dosage: 20 UG, DAILY (1/D)
     Dates: start: 20090216, end: 20090101
  2. FORTEO [Suspect]
     Dosage: 20 UG, DAILY (1/D)
     Dates: start: 20090101, end: 20090101
  3. AMLODIPINE [Concomitant]
     Dosage: 5 MG, DAILY (1/D)
  4. PROTONIX [Concomitant]
     Dosage: 40 MG, DAILY (1/D)
  5. LORAZEPAM [Concomitant]
  6. LOVAZA [Concomitant]
  7. VITAMIN D [Concomitant]
     Dosage: 50000 U, WEEKLY (1/W)
  8. MAGNESIUM [Concomitant]
  9. CALCIUM D [Concomitant]
  10. FLAXSEED OIL [Concomitant]
  11. ALBUTEROL [Concomitant]
     Dosage: 2 D/F, UNK
  12. XANAX [Concomitant]
     Dosage: 0.5 MG, DAILY (1/D)

REACTIONS (11)
  - ASTHENIA [None]
  - BACK PAIN [None]
  - DIZZINESS [None]
  - FALL [None]
  - FATIGUE [None]
  - FEELING ABNORMAL [None]
  - HEADACHE [None]
  - LABILE BLOOD PRESSURE [None]
  - LOSS OF CONSCIOUSNESS [None]
  - PAIN [None]
  - PALPITATIONS [None]
